FAERS Safety Report 7125902-7 (Version None)
Quarter: 2010Q4

REPORT INFORMATION
  Report Type: 
  Country: None (occurrence: None)
  Receive Date: 20101129
  Receipt Date: 20101119
  Transmission Date: 20110411
  Serious: Yes (Other)
  Sender: FDA-Public Use
  Company Number: AU-ASTRAZENECA-2010SE46873

PATIENT
  Age: 99 Year
  Sex: Female

DRUGS (1)
  1. NOLVADEX [Suspect]
     Indication: BREAST MASS
     Route: 048
     Dates: start: 20091015

REACTIONS (3)
  - FATIGUE [None]
  - NAUSEA [None]
  - NEOPLASM PROGRESSION [None]
